FAERS Safety Report 19653313 (Version 2)
Quarter: 2021Q3

REPORT INFORMATION
  Report Type: Report from Study
  Country: CA (occurrence: CA)
  Receive Date: 20210803
  Receipt Date: 20210928
  Transmission Date: 20211014
  Serious: Yes (Other)
  Sender: FDA-Public Use
  Company Number: PHHY2013CA125790

PATIENT
  Age: 51 Year
  Sex: Female

DRUGS (34)
  1. XOLAIR [Suspect]
     Active Substance: OMALIZUMAB
     Dosage: UNK
     Route: 058
     Dates: start: 20131210
  2. XOLAIR [Suspect]
     Active Substance: OMALIZUMAB
     Dosage: UNK
     Route: 058
     Dates: start: 20160531
  3. XOLAIR [Suspect]
     Active Substance: OMALIZUMAB
     Dosage: UNK
     Route: 058
     Dates: start: 20170505
  4. XOLAIR [Suspect]
     Active Substance: OMALIZUMAB
     Dosage: 225 MG, EVERY 4 WEEKS
     Route: 058
     Dates: start: 20180601
  5. XOLAIR [Suspect]
     Active Substance: OMALIZUMAB
     Dosage: 225 MG, BIW
     Route: 058
     Dates: start: 20131029
  6. XOLAIR [Suspect]
     Active Substance: OMALIZUMAB
     Dosage: 225 MG, EVERY 4 WEEKS
     Route: 058
     Dates: start: 20150526
  7. SPIRIVA [Concomitant]
     Active Substance: TIOTROPIUM BROMIDE MONOHYDRATE
     Indication: PRODUCT USED FOR UNKNOWN INDICATION
     Dosage: 2 DF, BID
     Route: 055
  8. XOLAIR [Suspect]
     Active Substance: OMALIZUMAB
     Dosage: 225 MG (150 MG IN RIGHT ARM AND 75 MG IN LEFT ARM)
     Route: 058
  9. XOLAIR [Suspect]
     Active Substance: OMALIZUMAB
     Dosage: UNK
     Route: 058
     Dates: start: 20160628
  10. XOLAIR [Suspect]
     Active Substance: OMALIZUMAB
     Dosage: UNK
     Route: 058
     Dates: start: 20170725
  11. XOLAIR [Suspect]
     Active Substance: OMALIZUMAB
     Dosage: 225 MG, EVERY 4 WEEKS
     Route: 058
     Dates: start: 20190723
  12. XOLAIR [Suspect]
     Active Substance: OMALIZUMAB
     Dosage: 225 MG, EVERY 4 WEEKS
     Route: 058
  13. XOLAIR [Suspect]
     Active Substance: OMALIZUMAB
     Dosage: 225 MG, EVERY 4 WEEKS
     Route: 065
  14. ASPIRIN. [Suspect]
     Active Substance: ASPIRIN
     Indication: PRODUCT USED FOR UNKNOWN INDICATION
     Dosage: UNK
     Route: 065
  15. XOLAIR [Suspect]
     Active Substance: OMALIZUMAB
     Dosage: UNK
     Route: 058
     Dates: start: 20160504
  16. XOLAIR [Suspect]
     Active Substance: OMALIZUMAB
     Dosage: 225 MG, QMO
     Route: 058
     Dates: start: 20210309
  17. XOLAIR [Suspect]
     Active Substance: OMALIZUMAB
     Indication: ASTHMA
     Dosage: 225 MG, EVERY 4 WEEKS
     Route: 058
     Dates: start: 20131029
  18. XOLAIR [Suspect]
     Active Substance: OMALIZUMAB
     Dosage: UNK
     Route: 058
     Dates: start: 20150120
  19. XOLAIR [Suspect]
     Active Substance: OMALIZUMAB
     Dosage: UNK
     Route: 058
     Dates: start: 20170731
  20. XOLAIR [Suspect]
     Active Substance: OMALIZUMAB
     Dosage: 225 MG, EVERY 4 WEEKS
     Route: 058
     Dates: start: 20181019
  21. XOLAIR [Suspect]
     Active Substance: OMALIZUMAB
     Dosage: UNK
     Route: 058
     Dates: start: 20140610
  22. XOLAIR [Suspect]
     Active Substance: OMALIZUMAB
     Dosage: 225 MG, EVERY 4 WEEKS
     Route: 058
  23. AMOXICILLIN. [Suspect]
     Active Substance: AMOXICILLIN
     Indication: PRODUCT USED FOR UNKNOWN INDICATION
     Dosage: UNK
     Route: 065
  24. XOLAIR [Suspect]
     Active Substance: OMALIZUMAB
     Dosage: UNK
     Route: 058
     Dates: start: 20140902
  25. XOLAIR [Suspect]
     Active Substance: OMALIZUMAB
     Dosage: UNK
     Route: 058
     Dates: start: 20160726
  26. XOLAIR [Suspect]
     Active Substance: OMALIZUMAB
     Dosage: UNK
     Route: 058
     Dates: start: 20161014
  27. VENTOLIN [Concomitant]
     Active Substance: ALBUTEROL SULFATE
     Indication: PRODUCT USED FOR UNKNOWN INDICATION
     Dosage: 2 DF, PRN
     Route: 055
  28. XOLAIR [Suspect]
     Active Substance: OMALIZUMAB
     Dosage: UNK
     Route: 058
     Dates: start: 20140415
  29. XOLAIR [Suspect]
     Active Substance: OMALIZUMAB
     Dosage: UNK
     Route: 058
     Dates: start: 2015
  30. XOLAIR [Suspect]
     Active Substance: OMALIZUMAB
     Dosage: UNK
     Route: 058
     Dates: start: 20160210
  31. XOLAIR [Suspect]
     Active Substance: OMALIZUMAB
     Dosage: UNK
     Route: 058
     Dates: start: 20170530
  32. XOLAIR [Suspect]
     Active Substance: OMALIZUMAB
     Dosage: 225 MG, EVERY 4 WEEKS
     Route: 058
     Dates: start: 20191112
  33. ASA [Suspect]
     Active Substance: ASPIRIN
     Indication: PRODUCT USED FOR UNKNOWN INDICATION
     Dosage: UNK
     Route: 065
  34. SYMBICORT [Concomitant]
     Active Substance: BUDESONIDE\FORMOTEROL FUMARATE DIHYDRATE
     Indication: PRODUCT USED FOR UNKNOWN INDICATION
     Dosage: 2 DF, BID
     Route: 055

REACTIONS (31)
  - Wheezing [Unknown]
  - Pain in extremity [Unknown]
  - Blood pressure decreased [Unknown]
  - Pulmonary function test decreased [Unknown]
  - Breath sounds abnormal [Unknown]
  - Insomnia [Unknown]
  - Anxiety [Unknown]
  - Rash [Recovering/Resolving]
  - Asthma [Not Recovered/Not Resolved]
  - Hypoventilation [Not Recovered/Not Resolved]
  - Rales [Unknown]
  - Drug hypersensitivity [Unknown]
  - Lung disorder [Unknown]
  - Middle insomnia [Unknown]
  - Emphysema [Unknown]
  - Lower respiratory tract infection [Unknown]
  - Pneumonia [Not Recovered/Not Resolved]
  - Chest pain [Not Recovered/Not Resolved]
  - Pneumonitis [Unknown]
  - Dyspnoea [Not Recovered/Not Resolved]
  - Hypersensitivity [Unknown]
  - Weight decreased [Unknown]
  - Skin mass [Unknown]
  - Obstructive airways disorder [Unknown]
  - Cough [Not Recovered/Not Resolved]
  - Malaise [Recovering/Resolving]
  - Product availability issue [Unknown]
  - Sensitivity to weather change [Unknown]
  - Pruritus [Unknown]
  - Nasopharyngitis [Unknown]
  - Product dose omission issue [Unknown]

NARRATIVE: CASE EVENT DATE: 20131029
